FAERS Safety Report 8622078-1 (Version None)
Quarter: 2012Q3

REPORT INFORMATION
  Report Type: 
  Country: None (occurrence: None)
  Receive Date: 20120822
  Receipt Date: 20120822
  Transmission Date: 20120928
  Serious: Yes (Hospitalization)
  Sender: FDA-Public Use
  Company Number: None

PATIENT
  Sex: Male
  Weight: 114.75 kg

DRUGS (1)
  1. INTERFERON [Suspect]
     Dosage: 240 MU
     Dates: end: 20120810

REACTIONS (2)
  - CELLULITIS [None]
  - BLOOD CREATINE PHOSPHOKINASE INCREASED [None]
